FAERS Safety Report 10367866 (Version 1)
Quarter: 2014Q3

REPORT INFORMATION
  Report Type: Spontaneous
  Country: US (occurrence: US)
  Receive Date: 20140807
  Receipt Date: 20140807
  Transmission Date: 20150326
  Serious: No
  Sender: FDA-Public Use
  Company Number: US-PFIZER INC-2014216388

PATIENT
  Age: 26 Year
  Sex: Male
  Weight: 78.01 kg

DRUGS (5)
  1. MARIJUANA [Interacting]
     Active Substance: CANNABIS SATIVA SUBSP. INDICA TOP
     Dosage: UNK
  2. VIAGRA [Suspect]
     Active Substance: SILDENAFIL CITRATE
     Dosage: 100 MG, UNK
     Dates: start: 20140731
  3. ZYPREXA [Concomitant]
     Active Substance: OLANZAPINE
     Indication: ANXIETY
     Dosage: 10 MG, UNK
  4. IBUPROFEN. [Interacting]
     Active Substance: IBUPROFEN
     Dosage: UNK
  5. ZYPREXA [Concomitant]
     Active Substance: OLANZAPINE
     Indication: DEPRESSION

REACTIONS (6)
  - Extra dose administered [Unknown]
  - Testicular disorder [Unknown]
  - Drug ineffective [Unknown]
  - Anorectal disorder [Unknown]
  - Drug interaction [Unknown]
  - Penis disorder [Unknown]

NARRATIVE: CASE EVENT DATE: 20140731
